FAERS Safety Report 15755398 (Version 1)
Quarter: 2018Q4

REPORT INFORMATION
  Report Type: Spontaneous
  Country: US (occurrence: US)
  Receive Date: 20181206
  Receipt Date: 20181206
  Transmission Date: 20190205
  Serious: No
  Sender: FDA-Public Use
  Company Number: None

PATIENT
  Age: 46 Year
  Sex: Male
  Weight: 79.38 kg

DRUGS (4)
  1. CLONAZEPAM. [Suspect]
     Active Substance: CLONAZEPAM
     Indication: ANXIETY
     Dosage: ?          OTHER STRENGTH:0.5 MG;QUANTITY:90 TOT - TOTAL;?
     Route: 048
     Dates: start: 20151008, end: 20151014
  2. WELLBUTRIN [Concomitant]
     Active Substance: BUPROPION HYDROCHLORIDE
  3. TRILLIFUN [Concomitant]
  4. VIT D 12.5MCG DAILY [Concomitant]

REACTIONS (3)
  - Suspected counterfeit product [None]
  - Manufacturing materials issue [None]
  - Drug ineffective [None]

NARRATIVE: CASE EVENT DATE: 20151008
